FAERS Safety Report 4423539-1 (Version None)
Quarter: 2004Q3

REPORT INFORMATION
  Report Type: 
  Country: None (occurrence: None)
  Receive Date: 20040805
  Receipt Date: 20040723
  Transmission Date: 20050211
  Serious: Yes (Life-Threatening, Hospitalization)
  Sender: FDA-Public Use
  Company Number: AT-2004-029317

PATIENT
  Age: 58 Year
  Sex: Female

DRUGS (4)
  1. MAGNEVIST [Suspect]
     Indication: NUCLEAR MAGNETIC RESONANCE IMAGING
     Dosage: 10 ML, INTRAVENOUS
     Route: 042
     Dates: start: 20040722, end: 20040722
  2. THYREX (LEVOTHYROXINE SODIUM) [Concomitant]
  3. MARCUMAR [Concomitant]
  4. HORMONES AND RELATED AGENTS [Concomitant]

REACTIONS (6)
  - BLOOD PRESSURE INCREASED [None]
  - CARDIOVASCULAR DISORDER [None]
  - DYSPNOEA [None]
  - FEELING COLD [None]
  - RASH GENERALISED [None]
  - VERTIGO [None]
